FAERS Safety Report 12928645 (Version 2)
Quarter: 2016Q4

REPORT INFORMATION
  Report Type: Spontaneous
  Country: FR (occurrence: FR)
  Receive Date: 20161110
  Receipt Date: 20161214
  Transmission Date: 20170207
  Serious: Yes (Hospitalization)
  Sender: FDA-Public Use
  Company Number: FR-AUROBINDO-AUR-APL-2016-13788

PATIENT
  Age: 67 Year
  Sex: Female

DRUGS (7)
  1. AMOXICILLIN CLAVULANIC ACID [Suspect]
     Active Substance: AMOXICILLIN\CLAVULANIC ACID
     Indication: ERYSIPELAS
     Dosage: 2 G, 3 TIMES A DAY
     Route: 048
     Dates: start: 20161008, end: 20161011
  2. CLINDAMYCIN. [Suspect]
     Active Substance: CLINDAMYCIN
     Indication: ERYSIPELAS
     Dosage: 600 MG, 3 TIMES A DAY
     Route: 048
     Dates: start: 20161008, end: 20161011
  3. AMOXICILLIN ARROW FILM-COATED DISPERSIBLE TABLET 1G [Suspect]
     Active Substance: AMOXICILLIN
     Indication: ERYSIPELAS
     Dosage: 2 G, 3 TIMES A DAY
     Route: 048
     Dates: start: 20161006, end: 20161008
  4. COVERAM [Concomitant]
     Active Substance: AMLODIPINE\PERINDOPRIL
     Indication: PRODUCT USED FOR UNKNOWN INDICATION
     Dosage: UNK, ONCE A DAY
     Route: 065
  5. NOVOMIX [Concomitant]
     Active Substance: INSULIN ASPART
     Indication: PRODUCT USED FOR UNKNOWN INDICATION
     Dosage: 50 UI, DAILY
     Route: 065
  6. KARDEGIC [Concomitant]
     Active Substance: ASPIRIN LYSINE
     Indication: PRODUCT USED FOR UNKNOWN INDICATION
     Dosage: 75 MG, ONCE A DAY
     Route: 065
  7. ATORVASTATINE                      /01326101/ [Concomitant]
     Active Substance: ATORVASTATIN
     Indication: PRODUCT USED FOR UNKNOWN INDICATION
     Dosage: 10 MG, ONCE A DAY
     Route: 065

REACTIONS (1)
  - Rash maculo-papular [Recovered/Resolved]

NARRATIVE: CASE EVENT DATE: 20161011
